FAERS Safety Report 14207618 (Version 1)
Quarter: 2017Q4

REPORT INFORMATION
  Report Type: Spontaneous
  Country: US (occurrence: US)
  Receive Date: 20171121
  Receipt Date: 20171121
  Transmission Date: 20180321
  Serious: No
  Sender: FDA-Public Use
  Company Number: US-JNJFOC-20171027242

PATIENT
  Age: 71 Year
  Sex: Male

DRUGS (10)
  1. ELIQUIS [Concomitant]
     Active Substance: APIXABAN
  2. ALPRAZOLAM. [Concomitant]
     Active Substance: ALPRAZOLAM
  3. ZOFRAN [Concomitant]
     Active Substance: ONDANSETRON HYDROCHLORIDE
  4. TAMSULOSIN [Concomitant]
     Active Substance: TAMSULOSIN
  5. COMPAZINE [Concomitant]
     Active Substance: PROCHLORPERAZINE MALEATE
  6. EMLA [Concomitant]
     Active Substance: LIDOCAINE\PRILOCAINE
  7. IMBRUVICA [Suspect]
     Active Substance: IBRUTINIB
     Indication: PROSTATE CANCER
     Route: 048
     Dates: start: 20170915, end: 2017
  8. PANTOPRAZOLE [Concomitant]
     Active Substance: PANTOPRAZOLE
  9. AMIODARONE [Concomitant]
     Active Substance: AMIODARONE
  10. ZOLOFT [Concomitant]
     Active Substance: SERTRALINE HYDROCHLORIDE

REACTIONS (3)
  - Off label use [Unknown]
  - Hepatotoxicity [Unknown]
  - Product use in unapproved indication [Unknown]

NARRATIVE: CASE EVENT DATE: 2017
